FAERS Safety Report 12859580 (Version 4)
Quarter: 2017Q1

REPORT INFORMATION
  Report Type: Spontaneous
  Country: GB (occurrence: GB)
  Receive Date: 20161018
  Receipt Date: 20170214
  Transmission Date: 20170428
  Serious: Yes (Life-Threatening, Hospitalization, Other)
  Sender: FDA-Public Use
  Company Number: GB-009507513-1610GBR009393

PATIENT
  Age: 80 Year
  Sex: Male

DRUGS (21)
  1. ACYCLOVIR. [Concomitant]
     Active Substance: ACYCLOVIR
     Indication: ANTIVIRAL PROPHYLAXIS
     Dosage: 400 MG, 1 IN 1 D
     Route: 048
     Dates: start: 20151208
  2. ADRENALINE [Concomitant]
     Active Substance: EPINEPHRINE
     Indication: DUODENAL ULCER
     Dosage: UNK
     Route: 065
  3. ASPIRIN. [Concomitant]
     Active Substance: ASPIRIN
     Indication: CAROTID ARTERY STENOSIS
     Dosage: 15 MILLIGRAM (75 MG, 1 IN 1 D)
     Route: 048
     Dates: start: 201003
  4. COTRIMOXAZOLE [Concomitant]
     Active Substance: SULFAMETHOXAZOLE\TRIMETHOPRIM
     Indication: ANTIFUNGAL PROPHYLAXIS
     Dosage: 960 MG, 3 IN 1 WEEK
     Route: 048
  5. COLCHICINE. [Concomitant]
     Active Substance: COLCHICINE
     Indication: GOUT
     Dosage: 2.1429 MILLIGRAM (500 MICROGRAM, 3 IN 1 D)
     Route: 048
     Dates: start: 20160216
  6. TICAGRELOR [Concomitant]
     Active Substance: TICAGRELOR
     Indication: AORTIC VALVE REPLACEMENT
     Dosage: 20 MILLIGRAM (90 MG, 1 IN 1 D)
     Route: 048
     Dates: start: 201003
  7. FLUCONAZOLE. [Concomitant]
     Active Substance: FLUCONAZOLE
     Indication: ANTIFUNGAL PROPHYLAXIS
     Dosage: 1500 MICROGRAM (ALSO REPORTED AS 100MG, 1 IN 1 D)
     Route: 048
     Dates: start: 20160408
  8. LANSOPRAZOLE. [Concomitant]
     Active Substance: LANSOPRAZOLE
     Indication: EPIGASTRIC DISCOMFORT
     Dosage: 15 MG, QD
     Route: 065
     Dates: start: 20160408
  9. PAMIDRONATE [Concomitant]
     Active Substance: PAMIDRONATE DISODIUM
     Indication: OSTEOPOROSIS PROPHYLAXIS
     Dosage: 411.4286 MILLIGRAM (30 MG, 1 IN 1 M)
     Route: 041
     Dates: start: 20151230
  10. TICAGRELOR [Concomitant]
     Active Substance: TICAGRELOR
     Indication: GASTROINTESTINAL HAEMORRHAGE
     Dosage: UNK UNK, QD
     Route: 065
  11. CLEXANE (ENOXAPARIN SODIUM) [Concomitant]
     Active Substance: ENOXAPARIN SODIUM
     Indication: THROMBOSIS PROPHYLAXIS
     Dosage: 1 MILLIGRAM (40 MG, 1 IN 1 D)
     Route: 058
     Dates: start: 20160408
  12. OMEPRAZOLE. [Concomitant]
     Active Substance: OMEPRAZOLE
     Indication: GASTROINTESTINAL DISORDER THERAPY
     Dosage: 10 MILLIGRAM (20 MG, 1 IN 1 D)
     Route: 048
     Dates: start: 20151208
  13. OMEPRAZOLE. [Concomitant]
     Active Substance: OMEPRAZOLE
     Indication: GASTROINTESTINAL HAEMORRHAGE
     Dosage: 1 IN 1 DAY
     Route: 041
     Dates: start: 20160417, end: 20160418
  14. LANTUS [Concomitant]
     Active Substance: INSULIN GLARGINE
     Indication: BLOOD GLUCOSE ABNORMAL
     Dosage: 10 UNITS, 1 IN 1 D (ROUTE OF ADMINISTRATION: INJECTION)
  15. DEXAMETHASONE. [Suspect]
     Active Substance: DEXAMETHASONE
     Indication: PLASMA CELL MYELOMA
     Dosage: 20 MG, 1 IN 1 WEEK
     Route: 048
     Dates: start: 20151218, end: 20160302
  16. LINAGLIPTIN [Concomitant]
     Active Substance: LINAGLIPTIN
     Indication: DIABETES MELLITUS
     Dosage: 5 MG, 3 IN 1 WEEK
     Route: 048
     Dates: start: 201003
  17. DICLOFENAC [Concomitant]
     Active Substance: DICLOFENAC
     Indication: PERIPHERAL VASCULAR DISORDER
     Dosage: 75 MG, (4 IN 1 D)
     Route: 047
     Dates: start: 201003
  18. REVLIMID [Suspect]
     Active Substance: LENALIDOMIDE
     Indication: PLASMA CELL MYELOMA
     Dosage: 10 MILLIGRAM (10 MG, 1 IN 1 D)
     Route: 048
     Dates: start: 20151218, end: 20160308
  19. ACETAMINOPHEN. [Concomitant]
     Active Substance: ACETAMINOPHEN
     Indication: FEMUR FRACTURE
     Dosage: 1 GM, 1 IN 1 D
     Route: 048
     Dates: start: 20160102
  20. AMLODIPINE [Concomitant]
     Active Substance: AMLODIPINE BESYLATE
     Indication: HYPERTENSION
     Dosage: 10 MG, 1 IN 1 D
     Route: 048
  21. ATORVASTATIN [Concomitant]
     Active Substance: ATORVASTATIN
     Indication: HYPERCHOLESTEROLAEMIA
     Dosage: 20 MG, QD
     Route: 048
     Dates: start: 201003

REACTIONS (3)
  - Gastrointestinal haemorrhage [Recovered/Resolved]
  - Stevens-Johnson syndrome [Recovered/Resolved with Sequelae]
  - Febrile neutropenia [Recovered/Resolved]

NARRATIVE: CASE EVENT DATE: 20160310
